FAERS Safety Report 13752135 (Version 2)
Quarter: 2017Q3

REPORT INFORMATION
  Report Type: Spontaneous
  Country: US (occurrence: US)
  Receive Date: 20170713
  Receipt Date: 20170810
  Transmission Date: 20171127
  Serious: No
  Sender: FDA-Public Use
  Company Number: US-009507513-1707USA001934

PATIENT

DRUGS (4)
  1. STERILE DILUENT [Concomitant]
     Active Substance: WATER
     Indication: PROPHYLAXIS
     Dosage: UNK
  2. PNEUMOVAX 23 [Suspect]
     Active Substance: PNEUMOCOCCAL VACCINE, POLYVALENT 23
  3. PNEUMOVAX 23 [Suspect]
     Active Substance: PNEUMOCOCCAL VACCINE, POLYVALENT 23
     Indication: PROPHYLAXIS
     Dates: start: 2017, end: 2017
  4. PNEUMOVAX 23 [Suspect]
     Active Substance: PNEUMOCOCCAL VACCINE, POLYVALENT 23

REACTIONS (1)
  - Product storage error [Unknown]

NARRATIVE: CASE EVENT DATE: 2017
